FAERS Safety Report 11050016 (Version 1)
Quarter: 2015Q2

REPORT INFORMATION
  Report Type: Spontaneous
  Country: US (occurrence: US)
  Receive Date: 20150420
  Receipt Date: 20150420
  Transmission Date: 20150821
  Serious: Yes (Hospitalization)
  Sender: FDA-Public Use
  Company Number: US-ENDO PHARMACEUTICALS INC.-201502030

PATIENT
  Age: 57 Year
  Sex: Male
  Weight: 98.06 kg

DRUGS (14)
  1. TESTIM [Suspect]
     Active Substance: TESTOSTERONE
     Indication: BLOOD TESTOSTERONE DECREASED
     Dosage: 150GM BUT PATIENT APPLIED DRUG 3TIMES A WEEK
     Route: 061
     Dates: start: 20071110, end: 2013
  2. TESTIM [Suspect]
     Active Substance: TESTOSTERONE
     Route: 062
     Dates: end: 2011
  3. LEVEMIR [Concomitant]
     Active Substance: INSULIN DETEMIR
     Route: 058
  4. ANDROGEL [Suspect]
     Active Substance: TESTOSTERONE
     Dosage: 3XW
     Dates: end: 2008
  5. CILOSTAZOL. [Concomitant]
     Active Substance: CILOSTAZOL
  6. AXIRON [Suspect]
     Active Substance: TESTOSTERONE
  7. ANDROGEL [Suspect]
     Active Substance: TESTOSTERONE
     Indication: BLOOD TESTOSTERONE DECREASED
     Route: 061
     Dates: start: 20070312
  8. NIFEDIPINE. [Concomitant]
     Active Substance: NIFEDIPINE
     Route: 048
  9. METFORMIN [Concomitant]
     Active Substance: METFORMIN HYDROCHLORIDE
  10. HYDRALAZINE [Concomitant]
     Active Substance: HYDRALAZINE HYDROCHLORIDE
  11. LOSARTAN [Concomitant]
     Active Substance: LOSARTAN
  12. METOPROLOL [Concomitant]
     Active Substance: METOPROLOL
  13. AXIRON [Suspect]
     Active Substance: TESTOSTERONE
     Dates: start: 2007
  14. GLIPIZIDE. [Concomitant]
     Active Substance: GLIPIZIDE
     Route: 048

REACTIONS (10)
  - Syncope [Unknown]
  - Mental disorder [None]
  - Blood creatinine increased [None]
  - Economic problem [None]
  - Pain [None]
  - Anxiety [None]
  - Incorrect dose administered [Unknown]
  - Acute myocardial infarction [Unknown]
  - Treatment noncompliance [Unknown]
  - Diabetes mellitus inadequate control [None]

NARRATIVE: CASE EVENT DATE: 20071110
